FAERS Safety Report 9789856 (Version 1)
Quarter: 2013Q4

REPORT INFORMATION
  Report Type: Spontaneous
  Country: US (occurrence: None)
  Receive Date: 20131230
  Receipt Date: 20131230
  Transmission Date: 20140711
  Serious: Yes (Other)
  Sender: FDA-Public Use
  Company Number: None

PATIENT
  Age: 42 Year
  Sex: Female
  Weight: 99.79 kg

DRUGS (1)
  1. CEFPODOXIME PROXETIL [Suspect]
     Indication: BRONCHITIS
     Dosage: 1, TWICE DAILY, TAKEN BY MOUTH
     Route: 048
     Dates: start: 20131226, end: 20131229

REACTIONS (7)
  - Migraine [None]
  - Skin burning sensation [None]
  - Documented hypersensitivity to administered drug [None]
  - Nausea [None]
  - Dizziness [None]
  - Dyspnoea [None]
  - Reaction to drug excipients [None]
